FAERS Safety Report 17839144 (Version 1)
Quarter: 2020Q2

REPORT INFORMATION
  Report Type: Spontaneous
  Country: AU (occurrence: AU)
  Receive Date: 20200529
  Receipt Date: 20200529
  Transmission Date: 20200714
  Serious: Yes (Other)
  Sender: FDA-Public Use
  Company Number: AU-TEVA-2020-AU-1241242

PATIENT
  Age: 50 Year
  Sex: Male
  Weight: 120 kg

DRUGS (5)
  1. ATORVASTATIN [Suspect]
     Active Substance: ATORVASTATIN
     Indication: DYSLIPIDAEMIA
     Dosage: 20 MILLIGRAM DAILY; IN THE MORNING
     Route: 065
  2. PERINDOPRIL [Suspect]
     Active Substance: PERINDOPRIL
     Indication: HYPERTENSION
     Dosage: 10 MILLIGRAM DAILY; IN THE MORNING
     Route: 065
  3. CLOZAPINE. [Suspect]
     Active Substance: CLOZAPINE
     Indication: SCHIZOPHRENIA
     Dosage: 400 MILLIGRAM DAILY; AT NIGHT
     Route: 065
     Dates: start: 2012
  4. LITHIUM CARBONATE XR [Suspect]
     Active Substance: LITHIUM CARBONATE
     Dosage: 900 MILLIGRAM DAILY;
     Route: 065
  5. AMISULPRIDE [Suspect]
     Active Substance: AMISULPRIDE
     Dosage: 150/150/300MG
     Route: 065

REACTIONS (4)
  - Therapeutic product effect incomplete [Unknown]
  - Heart rate abnormal [Unknown]
  - Electrocardiogram QT prolonged [Unknown]
  - Obesity [Unknown]
